FAERS Safety Report 5292943-4 (Version None)
Quarter: 2007Q2

REPORT INFORMATION
  Report Type: 
  Country: None (occurrence: None)
  Receive Date: 20070404
  Receipt Date: 20070323
  Transmission Date: 20071010
  Serious: Yes (Hospitalization)
  Sender: FDA-Public Use
  Company Number: 2006BI018617

PATIENT
  Age: 53 Year
  Sex: Female
  Weight: 70.7611 kg

DRUGS (4)
  1. AVONEX [Suspect]
     Indication: MULTIPLE SCLEROSIS
     Dosage: 30 UG; QM; IM
     Route: 030
     Dates: start: 20040201, end: 20061201
  2. AVONEX [Suspect]
     Indication: MULTIPLE SCLEROSIS
     Dosage: 30 UG; QW;IM
     Route: 030
     Dates: start: 20070101
  3. CRESTOR [Concomitant]
  4. ASPIRIN [Concomitant]

REACTIONS (7)
  - AGORAPHOBIA [None]
  - BLOOD PRESSURE INCREASED [None]
  - CHEST PAIN [None]
  - DIZZINESS [None]
  - GASTROOESOPHAGEAL REFLUX DISEASE [None]
  - PALPITATIONS [None]
  - POST-TRAUMATIC STRESS DISORDER [None]
